FAERS Safety Report 6023528-X (Version None)
Quarter: 2008Q4

REPORT INFORMATION
  Report Type: 
  Country: None (occurrence: None)
  Receive Date: 20081230
  Receipt Date: 20081222
  Transmission Date: 20090506
  Serious: Yes (Hospitalization)
  Sender: FDA-Public Use
  Company Number: PHHY2008CA31115

PATIENT
  Sex: Female

DRUGS (4)
  1. ACLASTA [Suspect]
     Indication: OSTEOPOROSIS
     Dosage: UNK
     Route: 042
     Dates: start: 20081202
  2. AVALIDE [Concomitant]
     Dosage: 300 UNK, TID
  3. CONCERTA [Concomitant]
     Dosage: 27 MG, TID
  4. SYNTHROID [Concomitant]
     Dosage: 0.112 MG, TID

REACTIONS (4)
  - BONE PAIN [None]
  - DELIRIUM [None]
  - MUSCULOSKELETAL CHEST PAIN [None]
  - PYREXIA [None]
